FAERS Safety Report 11968514 (Version 1)
Quarter: 2016Q1

REPORT INFORMATION
  Report Type: Spontaneous
  Country: IT (occurrence: IT)
  Receive Date: 20160128
  Receipt Date: 20160128
  Transmission Date: 20160526
  Serious: Yes (Other)
  Sender: FDA-Public Use
  Company Number: IT-ASTRAZENECA-2016SE07765

PATIENT
  Age: 25362 Day
  Sex: Male

DRUGS (1)
  1. MERREM [Suspect]
     Active Substance: MEROPENEM
     Indication: HYDROCHOLECYSTIS
     Route: 042
     Dates: start: 20160107, end: 20160111

REACTIONS (4)
  - Flushing [Recovered/Resolved]
  - Dysphagia [Recovered/Resolved]
  - Dyspnoea [Recovered/Resolved]
  - Dry mouth [Recovered/Resolved]

NARRATIVE: CASE EVENT DATE: 20160111
